FAERS Safety Report 12562263 (Version 1)
Quarter: 2016Q3

REPORT INFORMATION
  Report Type: Spontaneous
  Country: RO (occurrence: RO)
  Receive Date: 20160715
  Receipt Date: 20160715
  Transmission Date: 20161109
  Serious: Yes (Other)
  Sender: FDA-Public Use
  Company Number: RO-GILEAD-2016-0223310

PATIENT

DRUGS (4)
  1. HARVONI [Suspect]
     Active Substance: LEDIPASVIR\SOFOSBUVIR
     Indication: HEPATITIS C
     Route: 065
  2. AVASTIN                            /00848101/ [Concomitant]
     Active Substance: SIMVASTATIN
  3. CARBOPLATIN. [Concomitant]
     Active Substance: CARBOPLATIN
  4. PACLITAXEL ALBUMIN [Concomitant]
     Active Substance: PACLITAXEL

REACTIONS (1)
  - Lung neoplasm malignant [Unknown]
